FAERS Safety Report 13329647 (Version 1)
Quarter: 2017Q1

REPORT INFORMATION
  Report Type: Spontaneous
  Country: CN (occurrence: CN)
  Receive Date: 20170313
  Receipt Date: 20170313
  Transmission Date: 20170428
  Serious: Yes (Hospitalization)
  Sender: FDA-Public Use
  Company Number: CN-ASTRAZENECA-2017SE26000

PATIENT
  Age: 31 Day
  Sex: Male

DRUGS (2)
  1. AMOXICILLIN AND CLAVULANTE POTASSIUM [Concomitant]
  2. MEROPENEM. [Suspect]
     Active Substance: MEROPENEM
     Indication: SEPSIS
     Route: 042
     Dates: start: 20161119, end: 20161127

REACTIONS (1)
  - Diarrhoea infectious [Unknown]

NARRATIVE: CASE EVENT DATE: 20161127
